FAERS Safety Report 18323410 (Version 1)
Quarter: 2020Q3

REPORT INFORMATION
  Report Type: Spontaneous
  Country: TR (occurrence: TR)
  Receive Date: 20200928
  Receipt Date: 20200928
  Transmission Date: 20201103
  Serious: Yes (Other)
  Sender: FDA-Public Use
  Company Number: TR-TEVA-2020-TR-1833795

PATIENT
  Age: 19 Year
  Sex: Female
  Weight: 60 kg

DRUGS (1)
  1. COPAXONE [Suspect]
     Active Substance: GLATIRAMER ACETATE
     Indication: MULTIPLE SCLEROSIS
     Dosage: UNKNOWN FORM STRENGTH
     Route: 058
     Dates: start: 20170412, end: 202009

REACTIONS (3)
  - Injection site infection [Not Recovered/Not Resolved]
  - Product administered at inappropriate site [Unknown]
  - Vein rupture [Unknown]

NARRATIVE: CASE EVENT DATE: 20200915
